FAERS Safety Report 9218945 (Version 1)
Quarter: 2013Q2

REPORT INFORMATION
  Report Type: Spontaneous
  Country: ES (occurrence: ES)
  Receive Date: 20130409
  Receipt Date: 20130409
  Transmission Date: 20140414
  Serious: Yes (Other)
  Sender: FDA-Public Use
  Company Number: ES-JNJFOC-20121002964

PATIENT
  Sex: 0

DRUGS (2)
  1. ABCIXIMAB [Suspect]
     Indication: ACUTE CORONARY SYNDROME
     Dosage: 10 MCG/ MIN INFUSED FOR 12 HOURS.
     Route: 042
  2. BIVALIRUDIN [Suspect]
     Indication: ACUTE CORONARY SYNDROME
     Route: 065

REACTIONS (2)
  - Haemorrhage [Unknown]
  - Overdose [Unknown]
